FAERS Safety Report 11779799 (Version 1)
Quarter: 2015Q4

REPORT INFORMATION
  Report Type: Spontaneous
  Country: IT (occurrence: IT)
  Receive Date: 20151125
  Receipt Date: 20151125
  Transmission Date: 20160304
  Serious: Yes (Death)
  Sender: FDA-Public Use
  Company Number: IT-TEVA-611760ACC

PATIENT
  Age: 57 Year
  Sex: Male

DRUGS (3)
  1. CISPLATINO - SANDOZ S.P.A. [Suspect]
     Active Substance: CISPLATIN
     Indication: EXTRAGONADAL PRIMARY GERM CELL TUMOUR
     Dosage: 30 MG CYCLICAL
     Route: 042
     Dates: start: 20150928, end: 20151002
  2. ETOPOSIDE TEVA - TEVA PHARMA B.V. [Suspect]
     Active Substance: ETOPOSIDE
     Indication: EXTRAGONADAL PRIMARY GERM CELL TUMOUR
     Dosage: 155 MG CYCLICAL
     Route: 042
     Dates: start: 20150928, end: 20151002
  3. BLEOPRIM - SANOFI S.P.A. [Suspect]
     Active Substance: BLEOMYCIN SULFATE
     Indication: EXTRAGONADAL PRIMARY GERM CELL TUMOUR
     Dosage: 30 MG CYCLICAL
     Route: 042
     Dates: start: 20150929, end: 20151006

REACTIONS (5)
  - Pancytopenia [Fatal]
  - Dyspnoea [None]
  - Blood urea increased [None]
  - Dyspnoea [Fatal]
  - Blood alkaline phosphatase decreased [None]

NARRATIVE: CASE EVENT DATE: 20151013
